FAERS Safety Report 9041821 (Version 1)
Quarter: 2013Q1

REPORT INFORMATION
  Report Type: Report from Study
  Country: US (occurrence: US)
  Receive Date: 20130129
  Receipt Date: 20130129
  Transmission Date: 20140127
  Serious: No
  Sender: FDA-Public Use
  Company Number: US-ABBOTT-12P-163-0904175-00

PATIENT
  Age: 37 Year
  Sex: Male

DRUGS (5)
  1. HUMIRA 40 MG/0.8 ML PEN [Suspect]
     Indication: CROHN^S DISEASE
  2. NAPROXEN [Concomitant]
     Indication: PAIN
     Dosage: OTC  TWICE DAILY
  3. ALLEGRA [Concomitant]
     Indication: HYPERSENSITIVITY
     Dosage: INTERMITTENTLY
  4. FLUCONAZOLE [Concomitant]
     Indication: SINUS DISORDER
  5. BENADRYL [Concomitant]
     Indication: HYPERSENSITIVITY
     Dosage: INTERMITTENTLY

REACTIONS (7)
  - Injection site warmth [Recovering/Resolving]
  - Injection site erythema [Recovering/Resolving]
  - Injection site swelling [Recovering/Resolving]
  - Injection site pruritus [Recovering/Resolving]
  - Injection site erythema [Not Recovered/Not Resolved]
  - Injection site swelling [Not Recovered/Not Resolved]
  - Injection site pruritus [Not Recovered/Not Resolved]
